FAERS Safety Report 21082041 (Version 1)
Quarter: 2022Q3

REPORT INFORMATION
  Report Type: Spontaneous
  Country: DE (occurrence: DE)
  Receive Date: 20220714
  Receipt Date: 20220714
  Transmission Date: 20221027
  Serious: Yes (Hospitalization, Other)
  Sender: FDA-Public Use
  Company Number: DE-GLAXOSMITHKLINE-DE2022EME100103

PATIENT
  Age: 66 Year
  Sex: Male

DRUGS (2)
  1. HUMAN IMMUNOGLOBULIN G [Suspect]
     Active Substance: HUMAN IMMUNOGLOBULIN G
     Indication: Product used for unknown indication
  2. SHINGRIX [Suspect]
     Active Substance: RECOMBINANT VARICELLA ZOSTER VIRUS (VZV) GLYCOPROTEIN E
     Indication: Prophylaxis
     Dates: start: 20210317

REACTIONS (15)
  - Blood pressure systolic increased [Unknown]
  - Joint stiffness [Unknown]
  - Restlessness [Unknown]
  - Osteolysis [Unknown]
  - Asthenia [Unknown]
  - Bone lesion [Unknown]
  - Paraparesis [Unknown]
  - Dysaesthesia [Unknown]
  - Acute motor axonal neuropathy [Unknown]
  - Constipation [Unknown]
  - Acute polyneuropathy [Unknown]
  - Hypertensive crisis [Unknown]
  - Hypertension [Unknown]
  - Leukopenia [Unknown]
  - Nervous system disorder [Unknown]
